FAERS Safety Report 25968719 (Version 2)
Quarter: 2025Q4

REPORT INFORMATION
  Report Type: Spontaneous
  Country: US (occurrence: US)
  Receive Date: 20251028
  Receipt Date: 20251112
  Transmission Date: 20260117
  Serious: Yes (Other)
  Sender: PFIZER
  Company Number: US-PFIZER INC-202500210839

PATIENT
  Age: 28 Year
  Sex: Female

DRUGS (1)
  1. VELSIPITY [Suspect]
     Active Substance: ETRASIMOD ARGININE
     Indication: Proctitis ulcerative
     Dosage: 2 MG

REACTIONS (5)
  - Granulomatosis with polyangiitis [Unknown]
  - Polyarteritis nodosa [Unknown]
  - Proctitis ulcerative [Unknown]
  - Condition aggravated [Unknown]
  - Infection [Not Recovered/Not Resolved]
